FAERS Safety Report 12767282 (Version 5)
Quarter: 2018Q4

REPORT INFORMATION
  Report Type: Spontaneous
  Country: US (occurrence: US)
  Receive Date: 20160921
  Receipt Date: 20181029
  Transmission Date: 20190204
  Serious: Yes (Other)
  Sender: FDA-Public Use
  Company Number: US-GLAXOSMITHKLINE-US2016137189

PATIENT
  Age: 52 Year
  Sex: Female

DRUGS (11)
  1. BENLYSTA [Suspect]
     Active Substance: BELIMUMAB
     Indication: SYSTEMIC LUPUS ERYTHEMATOSUS
     Dosage: UNK, U
     Route: 042
     Dates: start: 20160905
  2. ADVAIR DISKUS [Concomitant]
     Active Substance: FLUTICASONE PROPIONATE\SALMETEROL XINAFOATE
  3. PREDNISONE. [Concomitant]
     Active Substance: PREDNISONE
  4. METHADONE [Concomitant]
     Active Substance: METHADONE HYDROCHLORIDE
  5. OXYCODONE [Concomitant]
     Active Substance: OXYCODONE
  6. PRILOSEC [Concomitant]
     Active Substance: OMEPRAZOLE MAGNESIUM
  7. BENLYSTA [Suspect]
     Active Substance: BELIMUMAB
     Dosage: UNK, CYC
     Route: 042
     Dates: start: 2016, end: 201608
  8. BENADRYL [Concomitant]
     Active Substance: DIPHENHYDRAMINE HYDROCHLORIDE
  9. LINZESS [Concomitant]
     Active Substance: LINACLOTIDE
  10. XANAX [Concomitant]
     Active Substance: ALPRAZOLAM
  11. AEROSPAN [Concomitant]
     Active Substance: FLUNISOLIDE

REACTIONS (41)
  - Musculoskeletal stiffness [Not Recovered/Not Resolved]
  - Fear [Not Recovered/Not Resolved]
  - Gastrointestinal tract irritation [Recovering/Resolving]
  - Gastrointestinal pain [Recovered/Resolved]
  - Condition aggravated [Not Recovered/Not Resolved]
  - Rash macular [Not Recovered/Not Resolved]
  - Headache [Unknown]
  - Feeling hot [Unknown]
  - Feeling cold [Not Recovered/Not Resolved]
  - Renal disorder [Unknown]
  - Dyspepsia [Recovered/Resolved]
  - Sputum discoloured [Not Recovered/Not Resolved]
  - Ill-defined disorder [Not Recovered/Not Resolved]
  - Confusional state [Not Recovered/Not Resolved]
  - Language disorder [Not Recovered/Not Resolved]
  - Blood glucose increased [Unknown]
  - Incorrect dose administered [Unknown]
  - Decreased appetite [Recovered/Resolved]
  - Lung infection [Not Recovered/Not Resolved]
  - Peripheral swelling [Not Recovered/Not Resolved]
  - Anger [Unknown]
  - Aggression [Not Recovered/Not Resolved]
  - Memory impairment [Unknown]
  - Product prescribing error [Unknown]
  - Depression [Unknown]
  - Rhinorrhoea [Unknown]
  - Migraine [Not Recovered/Not Resolved]
  - Dizziness [Not Recovered/Not Resolved]
  - Erythema [Not Recovered/Not Resolved]
  - Anxiety [Not Recovered/Not Resolved]
  - Hyperhidrosis [Not Recovered/Not Resolved]
  - Mental disorder [Unknown]
  - Abdominal distension [Recovering/Resolving]
  - Productive cough [Not Recovered/Not Resolved]
  - Body temperature decreased [Not Recovered/Not Resolved]
  - Mood swings [Not Recovered/Not Resolved]
  - Mental impairment [Not Recovered/Not Resolved]
  - Chest pain [Not Recovered/Not Resolved]
  - Nervousness [Unknown]
  - Energy increased [Unknown]
  - Abdominal discomfort [Recovered/Resolved]

NARRATIVE: CASE EVENT DATE: 2016
